FAERS Safety Report 4948939-2 (Version None)
Quarter: 2006Q1

REPORT INFORMATION
  Report Type: 
  Country: None (occurrence: None)
  Receive Date: 20060316
  Receipt Date: 20060306
  Transmission Date: 20060701
  Serious: Yes (Hospitalization)
  Sender: FDA-Public Use
  Company Number: 2006-BP-02497RO

PATIENT
  Age: 66 Year
  Sex: Female
  Weight: 94.35 kg

DRUGS (8)
  1. LITHIUM CARBONATE [Suspect]
     Indication: BIPOLAR DISORDER
     Dosage: 900 MG QHS (450 MG), PO
     Route: 048
     Dates: end: 20060208
  2. SINEMET [Suspect]
     Indication: PARKINSON'S DISEASE
     Dosage: 25/100 TABLET, TWICE A DAY (SEE TEXT, 2 IN 1 D), PO
     Route: 048
     Dates: start: 20060207, end: 20060208
  3. ARICEPT [Suspect]
     Dosage: 10 MG (10 MG, 1 IN 1 D), PO
     Route: 048
     Dates: start: 20060207, end: 20060208
  4. NORTRIPTYLINE HCL [Concomitant]
  5. CLORAZEPATE DIPOTASSIUM [Concomitant]
  6. VICODIN [Concomitant]
  7. DARVOCET [Concomitant]
  8. ASPIRIN [Concomitant]

REACTIONS (5)
  - BLOOD PRESSURE SYSTOLIC INCREASED [None]
  - HALLUCINATION [None]
  - INSOMNIA [None]
  - LOSS OF CONSCIOUSNESS [None]
  - TREMOR [None]
